FAERS Safety Report 25102451 (Version 1)
Quarter: 2025Q1

REPORT INFORMATION
  Report Type: Spontaneous
  Country: JP (occurrence: JP)
  Receive Date: 20250321
  Receipt Date: 20250321
  Transmission Date: 20250409
  Serious: Yes (Other)
  Sender: SANDOZ
  Company Number: JP-Sandoz Group AG-00075376

PATIENT
  Age: 73 Year
  Sex: Female

DRUGS (1)
  1. VALACYCLOVIR HYDROCHLORIDE [Suspect]
     Active Substance: VALACYCLOVIR HYDROCHLORIDE
     Indication: Herpes simplex
     Dosage: 1 DF, BID
     Route: 048
     Dates: start: 20250317

REACTIONS (3)
  - Loss of consciousness [Recovered/Resolved]
  - Fracture [Unknown]
  - Fall [Unknown]

NARRATIVE: CASE EVENT DATE: 20250317
